FAERS Safety Report 22362876 (Version 1)
Quarter: 2023Q2

REPORT INFORMATION
  Report Type: Spontaneous
  Country: GR (occurrence: GR)
  Receive Date: 20230525
  Receipt Date: 20230525
  Transmission Date: 20230722
  Serious: Yes (Other)
  Sender: FDA-Public Use
  Company Number: GR-SEATTLE GENETICS-2023SGN04873

PATIENT
  Sex: Female

DRUGS (3)
  1. TUKYSA [Suspect]
     Active Substance: TUCATINIB
     Indication: Breast cancer metastatic
     Dosage: 150 MG (2X2X25)
     Route: 065
     Dates: start: 20211125
  2. TRASTUZUMAB [Suspect]
     Active Substance: TRASTUZUMAB
     Indication: Breast cancer metastatic
     Dosage: 6 MG/KG
     Route: 065
     Dates: start: 20211125
  3. CAPECITABINE [Suspect]
     Active Substance: CAPECITABINE
     Indication: Breast cancer metastatic
     Dosage: 1000 MG/M2
     Route: 065
     Dates: start: 20211125

REACTIONS (3)
  - Neutropenia [Unknown]
  - Anaemia [Unknown]
  - Diarrhoea [Unknown]
